FAERS Safety Report 23106388 (Version 4)
Quarter: 2025Q1

REPORT INFORMATION
  Report Type: Spontaneous
  Country: CA (occurrence: CA)
  Receive Date: 20231025
  Receipt Date: 20250327
  Transmission Date: 20250409
  Serious: Yes (Other)
  Sender: SANDOZ
  Company Number: CA-Novartis Korea Ltd-NVSC2020CA087161

PATIENT
  Age: 12 Year
  Sex: Female

DRUGS (65)
  1. CYCLOSPORINE [Suspect]
     Active Substance: CYCLOSPORINE
     Indication: Product used for unknown indication
     Dosage: 3 MG, QD
     Route: 065
  2. CYCLOSPORINE [Suspect]
     Active Substance: CYCLOSPORINE
     Route: 065
  3. CYCLOSPORINE [Suspect]
     Active Substance: CYCLOSPORINE
     Route: 065
  4. ILARIS [Suspect]
     Active Substance: CANAKINUMAB
     Dosage: 1 DOSAGE  FORM, QMO (2 DOSES)
     Route: 058
  5. ILARIS [Suspect]
     Active Substance: CANAKINUMAB
     Dosage: 1 DOSAGE FORM, QMO (SINGLE-USE VIAL)
     Route: 058
  6. ILARIS [Suspect]
     Active Substance: CANAKINUMAB
     Indication: Still^s disease
     Dosage: 1 DOSAGE FORM, QMO (SINGLE-USE VIAL)
     Route: 058
  7. ILARIS [Suspect]
     Active Substance: CANAKINUMAB
     Dosage: 1 DOSAGE FORM, QMO (SINGLE-USE VIAL)
     Route: 058
  8. ILARIS [Suspect]
     Active Substance: CANAKINUMAB
     Dosage: 1 DOSAGE FORM, QMO (SINGLE-USE VIAL)
     Route: 058
  9. ILARIS [Suspect]
     Active Substance: CANAKINUMAB
     Route: 065
  10. ILARIS [Suspect]
     Active Substance: CANAKINUMAB
     Dosage: 300 MG, QMO
     Route: 058
  11. ILARIS [Suspect]
     Active Substance: CANAKINUMAB
     Dosage: 300 MG, QMO (6 DOSES)
     Route: 058
  12. ILARIS [Suspect]
     Active Substance: CANAKINUMAB
     Dosage: 300 MG, QMO (SINGLE-USE VIAL)
     Route: 058
  13. ILARIS [Suspect]
     Active Substance: CANAKINUMAB
     Dosage: 300 MG, QMO (SINGLE-USE VIAL)
     Route: 058
  14. ILARIS [Suspect]
     Active Substance: CANAKINUMAB
     Dosage: 300 MG, QMO (SINGLE-USE VIAL)
     Route: 058
  15. ILARIS [Suspect]
     Active Substance: CANAKINUMAB
     Dosage: 300 MG, QMO (SINGLE-USE VIAL)
     Route: 058
  16. ILARIS [Suspect]
     Active Substance: CANAKINUMAB
     Dosage: 300 MG, QMO (SINGLE-USE VIAL)
     Route: 058
  17. ILARIS [Suspect]
     Active Substance: CANAKINUMAB
     Dosage: 300 MG, QMO (SINGLE-USE VIAL)
     Route: 058
  18. ILARIS [Suspect]
     Active Substance: CANAKINUMAB
     Indication: Still^s disease
     Dosage: 300 MG, QMO (SINGLE-USE VIAL)
     Route: 058
  19. ILARIS [Suspect]
     Active Substance: CANAKINUMAB
     Dosage: 300 MG, QMO (SINGLE-USE VIAL)
     Route: 058
  20. ILARIS [Suspect]
     Active Substance: CANAKINUMAB
     Dosage: 300 MG, QMO (SINGLE-USE VIAL)
     Route: 058
  21. ILARIS [Suspect]
     Active Substance: CANAKINUMAB
     Dosage: 300 MG, QMO (SINGLE-USE VIAL)
     Route: 058
  22. ILARIS [Suspect]
     Active Substance: CANAKINUMAB
     Dosage: 300 MG, QMO (SINGLE-USE VIAL)
     Route: 058
  23. ILARIS [Suspect]
     Active Substance: CANAKINUMAB
     Dosage: 300 MG, QMO (SINGLE-USE VIAL)
     Route: 058
  24. ILARIS [Suspect]
     Active Substance: CANAKINUMAB
     Dosage: 300 MG, QMO (SINGLE-USE VIAL)
     Route: 058
  25. ILARIS [Suspect]
     Active Substance: CANAKINUMAB
     Dosage: 300 MG, QMO (SINGLE-USE VIAL)
     Route: 058
  26. ILARIS [Suspect]
     Active Substance: CANAKINUMAB
     Dosage: 300 MG, QMO (SINGLE-USE VIAL)
     Route: 058
  27. ILARIS [Suspect]
     Active Substance: CANAKINUMAB
     Dosage: 300 MG, QMO (SINGLE-USE VIAL)
     Route: 058
  28. ILARIS [Suspect]
     Active Substance: CANAKINUMAB
     Dosage: 300 MG, QMO (SINGLE-USE VIAL)
     Route: 058
  29. ILARIS [Suspect]
     Active Substance: CANAKINUMAB
     Dosage: 300 MG, QMO (SINGLE-USE VIAL)
     Route: 058
  30. ILARIS [Suspect]
     Active Substance: CANAKINUMAB
     Route: 058
  31. ILARIS [Suspect]
     Active Substance: CANAKINUMAB
     Route: 058
  32. ILARIS [Suspect]
     Active Substance: CANAKINUMAB
     Route: 058
  33. ILARIS [Suspect]
     Active Substance: CANAKINUMAB
     Route: 058
  34. ILARIS [Suspect]
     Active Substance: CANAKINUMAB
     Route: 058
  35. ILARIS [Suspect]
     Active Substance: CANAKINUMAB
     Route: 058
  36. ILARIS [Suspect]
     Active Substance: CANAKINUMAB
     Route: 058
  37. ILARIS [Suspect]
     Active Substance: CANAKINUMAB
     Route: 058
  38. ILARIS [Suspect]
     Active Substance: CANAKINUMAB
     Route: 058
  39. ILARIS [Suspect]
     Active Substance: CANAKINUMAB
     Route: 058
  40. ILARIS [Suspect]
     Active Substance: CANAKINUMAB
     Route: 058
  41. ILARIS [Suspect]
     Active Substance: CANAKINUMAB
     Route: 058
  42. ILARIS [Suspect]
     Active Substance: CANAKINUMAB
     Route: 058
  43. ILARIS [Suspect]
     Active Substance: CANAKINUMAB
     Route: 058
  44. ILARIS [Suspect]
     Active Substance: CANAKINUMAB
     Route: 058
  45. ILARIS [Suspect]
     Active Substance: CANAKINUMAB
     Route: 058
  46. ILARIS [Suspect]
     Active Substance: CANAKINUMAB
     Route: 058
  47. ILARIS [Suspect]
     Active Substance: CANAKINUMAB
     Route: 058
  48. ILARIS [Suspect]
     Active Substance: CANAKINUMAB
     Route: 058
  49. ILARIS [Suspect]
     Active Substance: CANAKINUMAB
     Route: 058
  50. ILARIS [Suspect]
     Active Substance: CANAKINUMAB
     Route: 058
  51. ILARIS [Suspect]
     Active Substance: CANAKINUMAB
     Route: 058
  52. METHOTREXATE [Suspect]
     Active Substance: METHOTREXATE
     Route: 065
  53. METHOTREXATE [Suspect]
     Active Substance: METHOTREXATE
     Route: 065
  54. METHOTREXATE [Suspect]
     Active Substance: METHOTREXATE
     Indication: Product used for unknown indication
     Dosage: UNK, QW
     Route: 058
  55. METHOTREXATE SODIUM [Suspect]
     Active Substance: METHOTREXATE SODIUM
     Indication: Product used for unknown indication
     Dosage: 1 DF, QW
     Route: 058
  56. ACTEMRA [Concomitant]
     Active Substance: TOCILIZUMAB
     Indication: Product used for unknown indication
     Route: 040
  57. ACTEMRA [Concomitant]
     Active Substance: TOCILIZUMAB
     Route: 040
  58. ACTEMRA [Concomitant]
     Active Substance: TOCILIZUMAB
     Route: 042
  59. ACTEMRA [Concomitant]
     Active Substance: TOCILIZUMAB
     Route: 042
  60. ANAKINRA [Concomitant]
     Active Substance: ANAKINRA
     Indication: Product used for unknown indication
     Route: 058
  61. INDOMETHACIN [Concomitant]
     Active Substance: INDOMETHACIN
     Indication: Product used for unknown indication
     Route: 065
  62. PREDNISONE [Concomitant]
     Active Substance: PREDNISONE
     Indication: Product used for unknown indication
     Dosage: 3 MG, QD
     Route: 065
  63. PREDNISONE [Concomitant]
     Active Substance: PREDNISONE
     Dosage: 80 MG, QD
     Route: 065
  64. PREDNISONE [Concomitant]
     Active Substance: PREDNISONE
     Dosage: 80 MG, QD
     Route: 065
  65. PREDNISONE [Concomitant]
     Active Substance: PREDNISONE
     Dosage: UNK, QD
     Route: 065

REACTIONS (19)
  - Suicide attempt [Recovered/Resolved]
  - Mental impairment [Recovered/Resolved]
  - Pyrexia [Recovered/Resolved]
  - Therapeutic response shortened [Recovered/Resolved]
  - Stress [Recovered/Resolved]
  - Scratch [Recovered/Resolved]
  - Skin lesion [Recovered/Resolved]
  - Arthropod bite [Recovered/Resolved]
  - Condition aggravated [Recovered/Resolved]
  - Still^s disease [Recovered/Resolved]
  - Injection site rash [Recovered/Resolved]
  - Urticaria [Recovered/Resolved]
  - Rash [Recovered/Resolved]
  - Erythema [Recovered/Resolved]
  - Fatigue [Recovered/Resolved]
  - Pruritus [Recovered/Resolved]
  - Hepatic enzyme increased [Recovered/Resolved]
  - Therapeutic product effect decreased [Recovered/Resolved]
  - Drug ineffective [Recovered/Resolved]
